FAERS Safety Report 19381441 (Version 1)
Quarter: 2021Q2

REPORT INFORMATION
  Report Type: Spontaneous
  Country: GB (occurrence: GB)
  Receive Date: 20210607
  Receipt Date: 20210607
  Transmission Date: 20210717
  Serious: Yes (Disabling)
  Sender: FDA-Public Use
  Company Number: GB-TEVA-2021-GB-1918888

PATIENT
  Age: 25 Year
  Sex: Female

DRUGS (2)
  1. HYDROCORTISONE. [Suspect]
     Active Substance: HYDROCORTISONE
     Route: 061
     Dates: start: 20160301, end: 20201107
  2. EUMOVATE [Suspect]
     Active Substance: CLOBETASONE BUTYRATE
     Indication: ECZEMA
     Route: 061
     Dates: start: 20160301, end: 20201107

REACTIONS (18)
  - Skin burning sensation [Unknown]
  - Rash [Unknown]
  - Steroid withdrawal syndrome [Unknown]
  - Skin exfoliation [Not Recovered/Not Resolved]
  - Skin weeping [Recovering/Resolving]
  - Skin disorder [Unknown]
  - Eye swelling [Recovering/Resolving]
  - Skin ulcer [Not Recovered/Not Resolved]
  - Paraesthesia [Unknown]
  - Temperature regulation disorder [Recovering/Resolving]
  - Alopecia [Recovering/Resolving]
  - Condition aggravated [Unknown]
  - Depression [Recovered/Resolved with Sequelae]
  - Insomnia [Recovering/Resolving]
  - Drug ineffective [Unknown]
  - Anxiety [Recovered/Resolved with Sequelae]
  - Skin atrophy [Recovering/Resolving]
  - Weight decreased [Recovered/Resolved]
